FAERS Safety Report 8499244-1 (Version None)
Quarter: 2012Q3

REPORT INFORMATION
  Report Type: 
  Country: None (occurrence: None)
  Receive Date: 20120710
  Receipt Date: 20120704
  Transmission Date: 20120928
  Serious: Yes (Other)
  Sender: FDA-Public Use
  Company Number: PHHY2012BR057887

PATIENT

DRUGS (1)
  1. SANDOSTATIN LAR [Suspect]
     Route: 030

REACTIONS (2)
  - METASTASES TO LIVER [None]
  - NEUROENDOCRINE TUMOUR [None]
